FAERS Safety Report 7818420-1 (Version None)
Quarter: 2011Q4

REPORT INFORMATION
  Report Type: 
  Country: None (occurrence: None)
  Receive Date: 20111017
  Receipt Date: 20111012
  Transmission Date: 20120403
  Serious: Yes (Hospitalization, Other)
  Sender: FDA-Public Use
  Company Number: FR-AMGEN-FRASP2011046235

PATIENT
  Sex: Male

DRUGS (1)
  1. VECTIBIX [Suspect]
     Indication: COLORECTAL CANCER METASTATIC
     Dosage: UNK
     Dates: end: 20110909

REACTIONS (3)
  - BILE DUCT OBSTRUCTION [None]
  - HEPATIC FUNCTION ABNORMAL [None]
  - JAUNDICE CHOLESTATIC [None]
